FAERS Safety Report 7320577-6 (Version None)
Quarter: 2011Q1

REPORT INFORMATION
  Report Type: 
  Country: None (occurrence: None)
  Receive Date: 20110228
  Receipt Date: 20110216
  Transmission Date: 20110831
  Serious: Yes (Other)
  Sender: FDA-Public Use
  Company Number: AU-PFIZER INC-2011034931

PATIENT
  Age: 67 Year
  Sex: Female

DRUGS (2)
  1. PRISTIQ [Suspect]
     Indication: DEPRESSION
     Dosage: 50 MG, 1X/DAY
     Dates: start: 20100901
  2. PRISTIQ [Suspect]
     Dosage: 100 MG, 1X/DAY
     Dates: start: 20110213

REACTIONS (10)
  - HEART RATE INCREASED [None]
  - CONTUSION [None]
  - OLIGURIA [None]
  - HYPERHIDROSIS [None]
  - DYSPNOEA [None]
  - DRUG INEFFECTIVE [None]
  - HEADACHE [None]
  - NAUSEA [None]
  - FEELING ABNORMAL [None]
  - MUSCULOSKELETAL STIFFNESS [None]
